FAERS Safety Report 8480003-0 (Version None)
Quarter: 2012Q2

REPORT INFORMATION
  Report Type: 
  Country: None (occurrence: None)
  Receive Date: 20120629
  Receipt Date: 20120620
  Transmission Date: 20120825
  Serious: Yes (Congenital Anomaly)
  Sender: FDA-Public Use
  Company Number: AU-ASTRAZENECA-2012SE42857

PATIENT
  Age: 0 Week

DRUGS (1)
  1. CANDESARTAN CILEXETIL [Suspect]
     Route: 064

REACTIONS (1)
  - CONGENITAL ANOMALY [None]
